FAERS Safety Report 4289987-8 (Version None)
Quarter: 2004Q1

REPORT INFORMATION
  Report Type: 
  Country: None (occurrence: None)
  Receive Date: 20040210
  Receipt Date: 19950406
  Transmission Date: 20041129
  Serious: Yes (Hospitalization)
  Sender: FDA-Public Use
  Company Number: WAES 95040205

PATIENT
  Age: 66 Year
  Sex: Female

DRUGS (7)
  1. MAXZIDE [Concomitant]
  2. AXID [Concomitant]
     Indication: GASTROINTESTINAL DISORDER
  3. ZOCOR [Suspect]
     Indication: HYPERCHOLESTEROLAEMIA
     Route: 048
  4. ZOCOR [Suspect]
     Route: 048
     Dates: start: 19911101, end: 19941101
  5. ZOCOR [Suspect]
     Route: 048
     Dates: start: 20030923
  6. ZOCOR [Suspect]
     Route: 048
     Dates: start: 19970101, end: 20030922
  7. ZOCOR [Suspect]
     Route: 048

REACTIONS (14)
  - ABDOMINAL PAIN UPPER [None]
  - ARTHRALGIA [None]
  - BLOOD TRIGLYCERIDES INCREASED [None]
  - BONE PAIN [None]
  - DYSGEUSIA [None]
  - FACE OEDEMA [None]
  - HEARING IMPAIRED [None]
  - JOINT STIFFNESS [None]
  - MUSCULOSKELETAL STIFFNESS [None]
  - MYALGIA [None]
  - OEDEMA PERIPHERAL [None]
  - OVARIAN CANCER [None]
  - OVARIAN NEOPLASM [None]
  - PHARMACEUTICAL PRODUCT COMPLAINT [None]
